FAERS Safety Report 8154718-8 (Version None)
Quarter: 2012Q1

REPORT INFORMATION
  Report Type: 
  Country: None (occurrence: None)
  Receive Date: 20120221
  Receipt Date: 20120207
  Transmission Date: 20120608
  Serious: Yes (Other)
  Sender: FDA-Public Use
  Company Number: PHHY2012DE014022

PATIENT
  Sex: Female
  Weight: 67 kg

DRUGS (7)
  1. DIURETICS [Concomitant]
  2. HMG COA REDUCTASE INHIBITORS [Concomitant]
  3. NON VALSARTAN ANGIOTENSIN RECEPTOR BLOCKERS [Concomitant]
  4. ANTIADRENERGIC AGENTS, CENTRALLY ACTING [Concomitant]
  5. ANTICOAGULANTS [Concomitant]
  6. BETA BLOCKING AGENTS [Concomitant]
  7. RASILEZ [Suspect]
     Indication: HYPERTENSION
     Dates: start: 20081127

REACTIONS (1)
  - CARDIAC FAILURE [None]
